FAERS Safety Report 5903311-3 (Version None)
Quarter: 2008Q3

REPORT INFORMATION
  Report Type: 
  Country: None (occurrence: None)
  Receive Date: 20080930
  Receipt Date: 20080918
  Transmission Date: 20090109
  Serious: Yes (Other)
  Sender: FDA-Public Use
  Company Number: B0538845A

PATIENT
  Age: 59 Year
  Sex: Female

DRUGS (2)
  1. AMOXICILLIN [Suspect]
     Indication: TOOTH DISORDER
     Dosage: 1500MG PER DAY
     Route: 048
     Dates: start: 20080906, end: 20080907
  2. ACETAMINOPHEN [Concomitant]
     Indication: DRUG USE FOR UNKNOWN INDICATION
     Route: 065
     Dates: start: 20080906

REACTIONS (5)
  - ANGIOEDEMA [None]
  - DRUG HYPERSENSITIVITY [None]
  - FEELING ABNORMAL [None]
  - GENERALISED ERYTHEMA [None]
  - RESPIRATORY DISORDER [None]
